FAERS Safety Report 7377605-1 (Version None)
Quarter: 2011Q1

REPORT INFORMATION
  Report Type: 
  Country: None (occurrence: None)
  Receive Date: 20110315
  Receipt Date: 20110302
  Transmission Date: 20110831
  Serious: Yes (Other)
  Sender: FDA-Public Use
  Company Number: 2011MA001948

PATIENT
  Sex: Male

DRUGS (1)
  1. METOCLOPRAMIDE [Suspect]
     Dosage: ; PO
     Route: 048
     Dates: start: 20050101, end: 20091201

REACTIONS (3)
  - EMOTIONAL DISORDER [None]
  - TARDIVE DYSKINESIA [None]
  - ILL-DEFINED DISORDER [None]
